FAERS Safety Report 6833324-9 (Version None)
Quarter: 2010Q3

REPORT INFORMATION
  Report Type: 
  Country: None (occurrence: None)
  Receive Date: 20100712
  Receipt Date: 20100701
  Transmission Date: 20110219
  Serious: Yes (Hospitalization, Other)
  Sender: FDA-Public Use
  Company Number: PHHY2010US43376

PATIENT
  Sex: Female

DRUGS (1)
  1. NEORAL [Suspect]

REACTIONS (8)
  - ACCIDENT [None]
  - ESCHERICHIA INFECTION [None]
  - HALLUCINATION [None]
  - HYPERHIDROSIS [None]
  - IMMUNOSUPPRESSION [None]
  - LOWER LIMB FRACTURE [None]
  - TREATMENT NONCOMPLIANCE [None]
  - TREMOR [None]
